FAERS Safety Report 13827507 (Version 2)
Quarter: 2017Q3

REPORT INFORMATION
  Report Type: Report from Study
  Country: PE (occurrence: PE)
  Receive Date: 20170802
  Receipt Date: 20170822
  Transmission Date: 20171127
  Serious: Yes (Other)
  Sender: FDA-Public Use
  Company Number: PE-BRISTOL-MYERS SQUIBB COMPANY-BMS-2017-067056

PATIENT
  Age: 64 Year
  Sex: Female

DRUGS (1)
  1. NIVOLUMAB [Suspect]
     Active Substance: NIVOLUMAB
     Indication: MALIGNANT MELANOMA
     Dosage: 160 MG, UNK
     Route: 065
     Dates: start: 20170710, end: 20170816

REACTIONS (5)
  - Urinary retention [Unknown]
  - Productive cough [Recovering/Resolving]
  - Intra-abdominal fluid collection [Unknown]
  - Urinary tract infection [Recovering/Resolving]
  - Dehydration [Recovering/Resolving]

NARRATIVE: CASE EVENT DATE: 20170725
